FAERS Safety Report 8346382-X (Version None)
Quarter: 2012Q2

REPORT INFORMATION
  Report Type: 
  Country: None (occurrence: None)
  Receive Date: 20120507
  Receipt Date: 20120507
  Transmission Date: 20120825
  Serious: Yes (Hospitalization)
  Sender: FDA-Public Use
  Company Number: None

PATIENT
  Sex: Male
  Weight: 94 kg

DRUGS (9)
  1. ZOFRAN [Concomitant]
  2. MULTI-VITAMIN [Concomitant]
  3. VINCRISTINE SULFATE [Suspect]
     Dosage: 3.6 MG
  4. PREDNISONE TAB [Suspect]
     Dosage: 1300 MG
  5. DOXORUBICIN HYDROCHLORIDE [Suspect]
     Dosage: 152 MG
  6. CYCLOPHOSPHAMIDE [Suspect]
     Dosage: 2780 MG
  7. ETOPOSIDE [Suspect]
     Dosage: 720 MG
  8. FLUORINE F-18 [Suspect]
     Dosage: 12 MG
  9. RITUXIMAB (MOAB C2B8 ANTI CD20, CHIMERIC) [Suspect]
     Dosage: 800 MG

REACTIONS (5)
  - TACHYCARDIA [None]
  - CLOSTRIDIUM TEST POSITIVE [None]
  - BODY TEMPERATURE INCREASED [None]
  - DIARRHOEA [None]
  - PANCYTOPENIA [None]
